FAERS Safety Report 5615398-6 (Version None)
Quarter: 2008Q1

REPORT INFORMATION
  Report Type: 
  Country: None (occurrence: None)
  Receive Date: 20080206
  Receipt Date: 20080123
  Transmission Date: 20080703
  Serious: Yes (Hospitalization, Other)
  Sender: FDA-Public Use
  Company Number: FI-AMGEN-US263037

PATIENT
  Age: 52 Year
  Sex: Female

DRUGS (2)
  1. ENBREL [Suspect]
     Indication: RHEUMATOID ARTHRITIS
     Route: 058
     Dates: start: 20050418, end: 20070824
  2. METHOTREXATE [Suspect]
     Indication: RHEUMATOID ARTHRITIS
     Dosage: UNSPECIFIED
     Route: 065
     Dates: start: 20010101

REACTIONS (7)
  - BALANCE DISORDER [None]
  - DEMYELINATION [None]
  - DIZZINESS [None]
  - MEMORY IMPAIRMENT [None]
  - NEPHRECTOMY [None]
  - NEUROENDOCRINE CARCINOMA OF THE SKIN [None]
  - RENAL FAILURE [None]
